FAERS Safety Report 14318739 (Version 1)
Quarter: 2017Q4

REPORT INFORMATION
  Report Type: Spontaneous
  Country: NO (occurrence: NO)
  Receive Date: 20171222
  Receipt Date: 20171222
  Transmission Date: 20180321
  Serious: Yes (Life-Threatening, Hospitalization)
  Sender: FDA-Public Use
  Company Number: NO-PFIZER INC-2017545921

PATIENT
  Age: 36 Year
  Sex: Male

DRUGS (5)
  1. LANTUS [Concomitant]
     Active Substance: INSULIN GLARGINE
     Indication: LATENT AUTOIMMUNE DIABETES IN ADULTS
     Dosage: 8 IU, 1X/DAY
     Route: 058
     Dates: start: 2017, end: 20171202
  2. ZOLOFT [Suspect]
     Active Substance: SERTRALINE HYDROCHLORIDE
     Indication: ILLNESS ANXIETY DISORDER
     Dosage: 25 MG, 1X/DAY
     Route: 048
     Dates: start: 20171129, end: 20171202
  3. SEROQUEL [Concomitant]
     Active Substance: QUETIAPINE FUMARATE
     Indication: ILLNESS ANXIETY DISORDER
     Dosage: 50 MG, 1X/DAY
     Route: 048
     Dates: start: 201711
  4. SOBRIL [Concomitant]
     Active Substance: OXAZEPAM
     Dosage: UNK, AS NEEDED
     Route: 048
  5. NOVORAPID [Concomitant]
     Active Substance: INSULIN ASPART
     Dosage: UNK, AS NEEDED
     Route: 058

REACTIONS (3)
  - Blood urine [Unknown]
  - Presyncope [Recovered/Resolved]
  - Hypoglycaemia [Recovered/Resolved]

NARRATIVE: CASE EVENT DATE: 201712
